FAERS Safety Report 6916833-3 (Version None)
Quarter: 2010Q3

REPORT INFORMATION
  Report Type: 
  Country: None (occurrence: None)
  Receive Date: 20100809
  Receipt Date: 20100809
  Transmission Date: 20110219
  Serious: Yes (Hospitalization)
  Sender: FDA-Public Use
  Company Number: None

PATIENT
  Sex: Female
  Weight: 76.81 kg

DRUGS (4)
  1. DOXORUBICIN HYDROCHLORIDE [Suspect]
  2. TAXOL [Suspect]
     Dosage: 80 MG
  3. NEULASTA [Suspect]
     Dosage: 60 MG
  4. CYCLOPHOSPHAMIDE [Suspect]
     Dosage: 1125 MG

REACTIONS (2)
  - MYOCARDIAL INFARCTION [None]
  - NEUTROPHIL COUNT ABNORMAL [None]
